FAERS Safety Report 18892005 (Version 1)
Quarter: 2021Q1

REPORT INFORMATION
  Report Type: Spontaneous
  Country: US (occurrence: US)
  Receive Date: 20210215
  Receipt Date: 20210215
  Transmission Date: 20210420
  Serious: Yes (Hospitalization)
  Sender: FDA-Public Use
  Company Number: US-ROCHE-2769166

PATIENT
  Sex: Female

DRUGS (30)
  1. CYCLOBENZAPRINE. [Concomitant]
     Active Substance: CYCLOBENZAPRINE
  2. MAGNESIUM [Concomitant]
     Active Substance: MAGNESIUM
  3. METRONIDAZOLE. [Concomitant]
     Active Substance: METRONIDAZOLE
  4. ROPINIROLE. [Concomitant]
     Active Substance: ROPINIROLE
  5. AZELASTINE. [Concomitant]
     Active Substance: AZELASTINE HYDROCHLORIDE
  6. BENZONATATE. [Concomitant]
     Active Substance: BENZONATATE
  7. FOLBEE [Concomitant]
     Active Substance: CYANOCOBALAMIN\FOLIC ACID\PYRIDOXINE HYDROCHLORIDE
  8. JANUMET [Concomitant]
     Active Substance: METFORMIN HYDROCHLORIDE\SITAGLIPTIN PHOSPHATE
  9. LUMIGAN [Concomitant]
     Active Substance: BIMATOPROST
  10. OMEPRAZOLE. [Concomitant]
     Active Substance: OMEPRAZOLE
  11. TRELEGY ELLIPTA [Concomitant]
     Active Substance: FLUTICASONE FUROATE\UMECLIDINIUM BROMIDE\VILANTEROL TRIFENATATE
  12. ATORVASTATIN [Concomitant]
     Active Substance: ATORVASTATIN
  13. LOSARTAN. [Concomitant]
     Active Substance: LOSARTAN
  14. ATENOLOL. [Concomitant]
     Active Substance: ATENOLOL
  15. BUSPIRONE [Concomitant]
     Active Substance: BUSPIRONE HYDROCHLORIDE
  16. MULTAQ [Concomitant]
     Active Substance: DRONEDARONE
  17. DIGOXIN. [Concomitant]
     Active Substance: DIGOXIN
  18. METOLAZONE. [Concomitant]
     Active Substance: METOLAZONE
  19. MONTELUKAST [Concomitant]
     Active Substance: MONTELUKAST SODIUM
  20. AZELAIC ACID. [Concomitant]
     Active Substance: AZELAIC ACID
  21. LEVOFLOXACIN. [Concomitant]
     Active Substance: LEVOFLOXACIN
  22. METOPROL XL [Concomitant]
  23. ESBRIET [Suspect]
     Active Substance: PIRFENIDONE
     Indication: IDIOPATHIC PULMONARY FIBROSIS
     Route: 048
     Dates: start: 20181006
  24. BUMETANIDE. [Concomitant]
     Active Substance: BUMETANIDE
  25. CEFDINIR. [Concomitant]
     Active Substance: CEFDINIR
  26. ELIQUIS [Concomitant]
     Active Substance: APIXABAN
  27. HYDROCODONE BITARTRATE AND ACETAMINOPHEN [Concomitant]
     Active Substance: ACETAMINOPHEN\HYDROCODONE BITARTRATE
  28. LIDOCAINE. [Concomitant]
     Active Substance: LIDOCAINE
  29. ONDANSETRON [Concomitant]
     Active Substance: ONDANSETRON
  30. URSODIOL. [Concomitant]
     Active Substance: URSODIOL

REACTIONS (1)
  - Pneumonia [Unknown]
